FAERS Safety Report 21858242 (Version 6)
Quarter: 2025Q1

REPORT INFORMATION
  Report Type: Report from Study
  Country: US (occurrence: US)
  Receive Date: 20230113
  Receipt Date: 20250115
  Transmission Date: 20250409
  Serious: Yes (Hospitalization, Other)
  Sender: TAKEDA
  Company Number: US-TAKEDA-2022TUS094585

PATIENT
  Age: 71 Year
  Sex: Male
  Weight: 74.83 kg

DRUGS (5)
  1. LANADELUMAB [Suspect]
     Active Substance: LANADELUMAB
     Indication: Immune system disorder
     Dosage: 300 MILLIGRAM, Q2WEEKS
     Dates: start: 20220808
  2. LANADELUMAB [Suspect]
     Active Substance: LANADELUMAB
     Dosage: 300 MILLIGRAM, Q2WEEKS
     Dates: start: 202208
  3. LANADELUMAB [Suspect]
     Active Substance: LANADELUMAB
     Dosage: 300 MILLIGRAM, MONTHLY
  4. LANADELUMAB [Suspect]
     Active Substance: LANADELUMAB
     Dosage: 300 MILLIGRAM, Q2WEEKS
  5. LANADELUMAB [Suspect]
     Active Substance: LANADELUMAB
     Dosage: 300 MILLIGRAM, Q4WEEKS

REACTIONS (13)
  - Neoplasm malignant [Unknown]
  - Chest pain [Unknown]
  - Full blood count decreased [Unknown]
  - Lymphoma [Unknown]
  - Pyrexia [Unknown]
  - Weight increased [Unknown]
  - Weight fluctuation [Unknown]
  - Stress [Unknown]
  - Weight decreased [Unknown]
  - Feeling abnormal [Unknown]
  - Off label use [Unknown]
  - Rash [Unknown]
  - Hereditary angioedema [Recovered/Resolved]

NARRATIVE: CASE EVENT DATE: 20221123
